FAERS Safety Report 22178993 (Version 2)
Quarter: 2023Q2

REPORT INFORMATION
  Report Type: Other
  Country: US (occurrence: US)
  Receive Date: 20230406
  Receipt Date: 20230427
  Transmission Date: 20230721
  Serious: Yes (Hospitalization)
  Sender: FDA-Public Use
  Company Number: US-GBT-021400

PATIENT
  Sex: Female

DRUGS (1)
  1. OXBRYTA [Suspect]
     Active Substance: VOXELOTOR
     Indication: Sickle cell disease
     Route: 048

REACTIONS (8)
  - Gastrooesophageal reflux disease [Unknown]
  - Dyspepsia [Unknown]
  - Illness [Unknown]
  - Diarrhoea [Unknown]
  - Therapy cessation [Unknown]
  - Off label use [Unknown]
  - Product use complaint [Unknown]
  - Abdominal pain upper [Unknown]
